FAERS Safety Report 24450841 (Version 1)
Quarter: 2024Q4

REPORT INFORMATION
  Report Type: Spontaneous
  Country: US (occurrence: US)
  Receive Date: 20241017
  Receipt Date: 20241017
  Transmission Date: 20250115
  Serious: Yes (Death, Other)
  Sender: BRISTOL-MYERS SQUIBB COMPANY
  Company Number: US-BRISTOL-MYERS SQUIBB COMPANY-2024-163769

PATIENT
  Age: 71 Year
  Sex: Female

DRUGS (1)
  1. LENALIDOMIDE [Suspect]
     Active Substance: LENALIDOMIDE
     Indication: Plasma cell myeloma
     Dosage: PATIENT RECEIVED LENALIDOMIDE THERAPY AT DOSE OF 25 MG TAKE 1 CAPSULE BY MOUTH DAILY ON DAYS 1-14 OF
     Route: 048

REACTIONS (2)
  - Death [Fatal]
  - Off label use [Unknown]
